FAERS Safety Report 6138179-6 (Version None)
Quarter: 2009Q1

REPORT INFORMATION
  Report Type: 
  Country: None (occurrence: None)
  Receive Date: 20090331
  Receipt Date: 20090324
  Transmission Date: 20090719
  Serious: Yes (Hospitalization)
  Sender: FDA-Public Use
  Company Number: US-ABBOTT-09P-163-0564312-00

PATIENT
  Sex: Male
  Weight: 58 kg

DRUGS (12)
  1. DEPAKOTE [Suspect]
     Indication: CONVULSION
     Dates: start: 20090303, end: 20090305
  2. CORTEF [Suspect]
     Indication: ADRENAL INSUFFICIENCY
     Dosage: 20 MG TWICE A DAY
  3. DILAUDID [Concomitant]
     Indication: DRUG USE FOR UNKNOWN INDICATION
  4. CLONIDINE [Concomitant]
     Indication: DRUG USE FOR UNKNOWN INDICATION
  5. ASACOL [Concomitant]
     Indication: DRUG USE FOR UNKNOWN INDICATION
  6. FLUOXETINE [Concomitant]
     Indication: DRUG USE FOR UNKNOWN INDICATION
  7. ACIPHEX [Concomitant]
     Indication: DRUG USE FOR UNKNOWN INDICATION
  8. DOMPERIDONE [Concomitant]
     Indication: DRUG USE FOR UNKNOWN INDICATION
  9. ZEGERID [Concomitant]
     Indication: DRUG USE FOR UNKNOWN INDICATION
  10. STRATTERA [Concomitant]
     Indication: DRUG USE FOR UNKNOWN INDICATION
  11. NAMENDA [Concomitant]
     Indication: DRUG USE FOR UNKNOWN INDICATION
  12. LEXAPRO [Concomitant]
     Indication: DRUG USE FOR UNKNOWN INDICATION

REACTIONS (5)
  - ASTHENIA [None]
  - BLOOD CORTISOL DECREASED [None]
  - BLOOD SODIUM DECREASED [None]
  - CONVULSION [None]
  - HAEMOGLOBIN DECREASED [None]
